FAERS Safety Report 19189181 (Version 1)
Quarter: 2021Q2

REPORT INFORMATION
  Report Type: Spontaneous
  Country: US (occurrence: US)
  Receive Date: 20210428
  Receipt Date: 20210428
  Transmission Date: 20210717
  Serious: Yes (Other)
  Sender: FDA-Public Use
  Company Number: None

PATIENT
  Age: 31 Year
  Sex: Female
  Weight: 78.75 kg

DRUGS (3)
  1. CANNABLISS BALM [Suspect]
     Active Substance: CANNABIDIOL\HERBALS
     Indication: MYALGIA
     Dosage: ?          OTHER FREQUENCY:BEFORE + AFTER RUN;?
     Route: 061
     Dates: start: 20210426, end: 20210426
  2. B12 SUPPLEMENT [Concomitant]
  3. WOMAN^S DAILY VITAMIN [Concomitant]

REACTIONS (4)
  - Urticaria [None]
  - Product formulation issue [None]
  - Blister [None]
  - Rash [None]

NARRATIVE: CASE EVENT DATE: 20210426
